FAERS Safety Report 6258118-7 (Version None)
Quarter: 2009Q3

REPORT INFORMATION
  Report Type: 
  Country: None (occurrence: None)
  Receive Date: 20090707
  Receipt Date: 20090624
  Transmission Date: 20100115
  Serious: Yes (Disabling)
  Sender: FDA-Public Use
  Company Number: AU-ASTRAZENECA-2009SE03242

PATIENT
  Age: 36 Year
  Sex: Male

DRUGS (3)
  1. NEXIUM [Suspect]
     Dosage: 2 DOSE UNSPECIFIED 2 TIMES
     Route: 048
     Dates: start: 20080505, end: 20081205
  2. AMOXICILLIN [Suspect]
  3. CLARITHROMYCIN [Suspect]

REACTIONS (1)
  - SKIN EXFOLIATION [None]
